FAERS Safety Report 4768302-7 (Version None)
Quarter: 2005Q3

REPORT INFORMATION
  Report Type: 
  Country: None (occurrence: None)
  Receive Date: 20050914
  Receipt Date: 20050902
  Transmission Date: 20060218
  Serious: Yes (Hospitalization, Other)
  Sender: FDA-Public Use
  Company Number: GB-BRISTOL-MYERS SQUIBB COMPANY-13100326

PATIENT
  Sex: Male

DRUGS (5)
  1. REYATAZ [Suspect]
     Route: 048
     Dates: start: 20050601, end: 20050823
  2. LAMIVUDINE [Concomitant]
     Dates: start: 20050601
  3. ABACAVIR [Concomitant]
  4. KALETRA [Concomitant]
     Dosage: STOPPED IN JUNE 2005, RE-STARTED 23-AUG-2005
  5. COMBIVIR [Concomitant]
     Dosage: 300 MG ZIDOVUDINE / 150 MG LAMIVUDINE
     Dates: end: 20050601

REACTIONS (2)
  - BLOOD GLUCOSE INCREASED [None]
  - VISION BLURRED [None]
